FAERS Safety Report 11260204 (Version 1)
Quarter: 2015Q3

REPORT INFORMATION
  Report Type: Spontaneous
  Country: US (occurrence: US)
  Receive Date: 20150710
  Receipt Date: 20150710
  Transmission Date: 20151125
  Serious: No
  Sender: FDA-Public Use
  Company Number: US-PURDUE-USA-2014-0118719

PATIENT
  Sex: Female

DRUGS (1)
  1. BUTRANS [Suspect]
     Active Substance: BUPRENORPHINE
     Indication: BACK DISORDER
     Dosage: 10 MCG/HR, WEEKLY
     Route: 062
     Dates: start: 201410

REACTIONS (4)
  - Hyperhidrosis [Unknown]
  - Feeling abnormal [Unknown]
  - Respiration abnormal [Unknown]
  - Back pain [Unknown]
